FAERS Safety Report 8102461-3 (Version None)
Quarter: 2012Q1

REPORT INFORMATION
  Report Type: 
  Country: None (occurrence: None)
  Receive Date: 20120126
  Receipt Date: 20120112
  Transmission Date: 20120608
  Serious: Yes (Death, Hospitalization)
  Sender: FDA-Public Use
  Company Number: UTC-013363

PATIENT
  Age: 85 Year
  Sex: Male
  Weight: 58.6 kg

DRUGS (4)
  1. TYVASO [Suspect]
     Indication: PULMONARY ARTERIAL HYPERTENSION
     Dosage: 36-42 MICROGRAMS (4 IN 1 D) ,INHALATION
     Route: 055
     Dates: start: 20111117, end: 20111212
  2. REVATIO [Concomitant]
  3. COUMADIN [Concomitant]
  4. DIURETICS [Concomitant]

REACTIONS (4)
  - DEHYDRATION [None]
  - NAUSEA [None]
  - PNEUMONIA [None]
  - VOMITING [None]
